FAERS Safety Report 16136124 (Version 2)
Quarter: 2019Q2

REPORT INFORMATION
  Report Type: Spontaneous
  Country: JP (occurrence: JP)
  Receive Date: 20190331
  Receipt Date: 20190422
  Transmission Date: 20190711
  Serious: Yes (Life-Threatening, Hospitalization, Other)
  Sender: FDA-Public Use
  Company Number: JP-AMGEN-JPNSP2019050652

PATIENT
  Age: 76 Year
  Sex: Male
  Weight: 59.3 kg

DRUGS (9)
  1. KYPROLIS [Suspect]
     Active Substance: CARFILZOMIB
     Indication: PLASMA CELL MYELOMA
     Dosage: 80 MILLIGRAM, EVERYDAY
     Route: 041
     Dates: start: 20181205, end: 20190228
  2. ENTECAVIR OD [Concomitant]
     Dosage: 0.5 MG, EVERYDAY
     Route: 048
     Dates: start: 20170117
  3. DAIPHEN [Concomitant]
     Active Substance: SULFAMETHOXAZOLE\TRIMETHOPRIM
     Dosage: UNK, EVERYDAY
     Route: 048
  4. LENADEX [Concomitant]
     Active Substance: DEXAMETHASONE ACETATE
     Dosage: 20 MG, EVERYDAY
     Route: 048
  5. ROSUVASTATIN [ROSUVASTATIN CALCIUM] [Concomitant]
     Dosage: 2.5 MG, EVERYDAY
     Route: 048
  6. MAINTATE [Concomitant]
     Active Substance: BISOPROLOL FUMARATE
     Dosage: 2.5 MG
     Route: 048
  7. CLOPIDOGREL BISULFATE. [Concomitant]
     Active Substance: CLOPIDOGREL BISULFATE
     Dosage: 75 MG, EVERYDAY
     Route: 048
  8. NICORANDIL [Concomitant]
     Active Substance: NICORANDIL
     Dosage: 5 MG, Q8H
     Route: 048
  9. SODIUM RABEPRAZOLE [Concomitant]
     Active Substance: RABEPRAZOLE SODIUM
     Dosage: 10 MG, EVERYDAY
     Route: 048

REACTIONS (3)
  - Cardiac failure congestive [Recovering/Resolving]
  - Ventricular tachycardia [Recovered/Resolved]
  - Electrocardiogram QT prolonged [Recovered/Resolved]

NARRATIVE: CASE EVENT DATE: 20190228
